FAERS Safety Report 5084142-6 (Version None)
Quarter: 2006Q3

REPORT INFORMATION
  Report Type: 
  Country: None (occurrence: None)
  Receive Date: 20060816
  Receipt Date: 20060807
  Transmission Date: 20061208
  Serious: Yes (Other)
  Sender: FDA-Public Use
  Company Number: 2006096185

PATIENT
  Age: 49 Year
  Sex: Female
  Weight: 136.0791 kg

DRUGS (6)
  1. BENADRYL [Suspect]
     Indication: INSOMNIA
     Dosage: 15 TABS DAILY (2-3 TIMES A WEEK), ORAL
     Route: 048
     Dates: start: 20050101
  2. ZIPRASIDONE HYDROCHLORIDE (ZIPRASIDONE HYDROCHLORIDE [Concomitant]
  3. PROGESTERONE [Concomitant]
  4. ESTRADIOL [Concomitant]
  5. CLONAZEPAM [Concomitant]
  6. FLUOXETINE HCL [Concomitant]

REACTIONS (4)
  - DISORIENTATION [None]
  - FEELING ABNORMAL [None]
  - POLLAKIURIA [None]
  - SOMNOLENCE [None]
